FAERS Safety Report 7826200-6 (Version None)
Quarter: 2011Q4

REPORT INFORMATION
  Report Type: 
  Country: None (occurrence: None)
  Receive Date: 20111020
  Receipt Date: 20111010
  Transmission Date: 20120403
  Serious: Yes (Other)
  Sender: FDA-Public Use
  Company Number: FR-BIOGENIDEC-2011BI038849

PATIENT
  Age: 48 Year
  Sex: Female

DRUGS (3)
  1. ANTI HYPERTENSIVE [Concomitant]
     Indication: HYPERTENSION
  2. PRAMIPEXOLE DIHYDROCHLORIDE [Concomitant]
     Indication: RESTLESS LEGS SYNDROME
     Route: 048
  3. TYSABRI [Suspect]
     Indication: MULTIPLE SCLEROSIS
     Route: 042
     Dates: start: 20090810

REACTIONS (1)
  - MALIGNANT MELANOMA [None]
